FAERS Safety Report 4375346-6 (Version None)
Quarter: 2004Q2

REPORT INFORMATION
  Report Type: 
  Country: None (occurrence: None)
  Receive Date: 20040610
  Receipt Date: 20040603
  Transmission Date: 20050107
  Serious: Yes (Hospitalization)
  Sender: FDA-Public Use
  Company Number: US-BRISTOL-MYERS SQUIBB COMPANY-12605010

PATIENT
  Age: 26 Year
  Sex: Female

DRUGS (7)
  1. STAVUDINE [Suspect]
     Indication: ACQUIRED IMMUNODEFICIENCY SYNDROME
  2. EFAVIRENZ [Suspect]
     Indication: ACQUIRED IMMUNODEFICIENCY SYNDROME
  3. LAMIVUDINE [Suspect]
     Indication: ACQUIRED IMMUNODEFICIENCY SYNDROME
  4. TRIMETHOPRIM-SULFAMETHOXAZOLE [Concomitant]
  5. AZITHROMYCIN [Concomitant]
  6. GANCICLOVIR [Concomitant]
     Route: 048
  7. ALBUTEROL [Concomitant]

REACTIONS (8)
  - BLOOD ALKALINE PHOSPHATASE INCREASED [None]
  - BLOOD PRESSURE DECREASED [None]
  - BODY TEMPERATURE INCREASED [None]
  - FITZ-HUGH-CURTIS SYNDROME [None]
  - GALLBLADDER DISORDER [None]
  - HEART RATE INCREASED [None]
  - RESPIRATORY RATE INCREASED [None]
  - ULTRASOUND ABDOMEN ABNORMAL [None]
